FAERS Safety Report 6493373-X (Version None)
Quarter: 2009Q4

REPORT INFORMATION
  Report Type: 
  Country: None (occurrence: None)
  Receive Date: 20091209
  Receipt Date: 20091123
  Transmission Date: 20100525
  Serious: Yes (Other)
  Sender: FDA-Public Use
  Company Number: DSA_42063_2009

PATIENT
  Sex: Female
  Weight: 160 kg

DRUGS (9)
  1. LORAZEPAM [Suspect]
     Indication: INSOMNIA
     Dosage: 1 MG, 1 MG AT BEDTIME AND 0.5 MG DURING THE NIGHT ORAL
     Route: 048
  2. LYRICA [Suspect]
     Indication: NEURALGIA
     Dosage: 75 MG QD ORAL, 75 MG BID, ONE 75 MG TAB AND ONE-HALF 75 MG TAB DAILY
     Route: 048
     Dates: start: 20090915, end: 20091019
  3. NORFLEX [Suspect]
     Indication: MUSCLE RELAXANT THERAPY
     Dosage: ORAL 1/2 TABLET IN THE MIDDLE OF THE NIGHT ORAL
     Route: 048
  4. MORPHINE [Concomitant]
  5. LACTULOSE [Concomitant]
  6. LAMICTAL [Concomitant]
  7. MAGNESIUM [Concomitant]
  8. ANABOLIC STEROIDS [Concomitant]
  9. CONJUGATED ESTROGENS [Concomitant]

REACTIONS (14)
  - ACTIVITIES OF DAILY LIVING IMPAIRED [None]
  - ARTHRALGIA [None]
  - DIARRHOEA [None]
  - GASTROOESOPHAGEAL REFLUX DISEASE [None]
  - JOINT RANGE OF MOTION DECREASED [None]
  - LOSS OF CONTROL OF LEGS [None]
  - MUSCLE FATIGUE [None]
  - MUSCLE SPASMS [None]
  - MUSCULAR WEAKNESS [None]
  - NAUSEA [None]
  - PAIN [None]
  - TENDERNESS [None]
  - ULCER [None]
  - WEIGHT DECREASED [None]
